FAERS Safety Report 24656107 (Version 1)
Quarter: 2024Q4

REPORT INFORMATION
  Report Type: Spontaneous
  Country: US (occurrence: US)
  Receive Date: 20241124
  Receipt Date: 20241124
  Transmission Date: 20250114
  Serious: No
  Sender: SANOFI AVENTIS
  Company Number: US-SA-2024SA338836

PATIENT
  Sex: Male
  Weight: 31.27 kg

DRUGS (5)
  1. DUPIXENT [Suspect]
     Active Substance: DUPILUMAB
     Indication: Oesophagitis
     Dosage: 300 MG, QOW
     Route: 058
  2. ILARIS [Concomitant]
     Active Substance: CANAKINUMAB
     Dosage: UNK
  3. ACETAZOLAMIDE [Concomitant]
     Active Substance: ACETAZOLAMIDE
     Dosage: UNK
  4. ASPIRIN [Concomitant]
     Active Substance: ASPIRIN
     Dosage: UNK
  5. KINERET [Concomitant]
     Active Substance: ANAKINRA
     Dosage: UNK

REACTIONS (2)
  - Injection site reaction [Unknown]
  - Product use in unapproved indication [Unknown]
